FAERS Safety Report 9285974 (Version 2)
Quarter: 2013Q2

REPORT INFORMATION
  Report Type: Spontaneous
  Country: ES (occurrence: ES)
  Receive Date: 20130513
  Receipt Date: 20130619
  Transmission Date: 20140414
  Serious: Yes (Hospitalization, Other)
  Sender: FDA-Public Use
  Company Number: JP-ASTRAZENECA-2013SE32172

PATIENT
  Age: 74 Year
  Sex: Male
  Weight: 90 kg

DRUGS (9)
  1. PARAPRES PLUS [Suspect]
     Dosage: CANDESARTAN CILEXETIL 16 MG/HYDROCHLOROTHIAZIDE 12.5 MG
     Route: 048
     Dates: start: 20120127
  2. OMEPRAZOL [Suspect]
     Route: 065
     Dates: start: 20120417
  3. RONAME [Suspect]
     Route: 048
     Dates: start: 20120626
  4. VYTORIN [Suspect]
     Dosage: 10 MG/20 MG
     Route: 048
     Dates: start: 20120525
  5. TRAJENTA [Suspect]
     Route: 048
     Dates: start: 20120417
  6. CELEBREX [Suspect]
     Route: 048
     Dates: start: 20120517
  7. ADIRO [Concomitant]
     Route: 048
  8. NOLOTIL [Concomitant]
     Dosage: 575 MG AS NEEDED
     Route: 048
  9. PLANTAGO OVATA LEAF [Concomitant]
     Route: 065

REACTIONS (2)
  - Abdominal pain [Recovered/Resolved]
  - Hepatitis cholestatic [Not Recovered/Not Resolved]
